FAERS Safety Report 7123186-7 (Version None)
Quarter: 2010Q4

REPORT INFORMATION
  Report Type: 
  Country: None (occurrence: None)
  Receive Date: 20101125
  Receipt Date: 20101116
  Transmission Date: 20110411
  Serious: No
  Sender: FDA-Public Use
  Company Number: US-BIOGENIDEC-2010BI040631

PATIENT
  Sex: Male

DRUGS (2)
  1. TYSABRI [Suspect]
     Indication: MULTIPLE SCLEROSIS
     Route: 042
     Dates: start: 20100804
  2. TYSABRI [Suspect]
     Route: 042
     Dates: start: 20061009, end: 20080926

REACTIONS (2)
  - CYSTITIS [None]
  - KIDNEY INFECTION [None]
